FAERS Safety Report 10102421 (Version 1)
Quarter: 2014Q2

REPORT INFORMATION
  Report Type: Spontaneous
  Country: CA (occurrence: None)
  Receive Date: 20140422
  Receipt Date: 20140422
  Transmission Date: 20141212
  Serious: Yes (Hospitalization)
  Sender: FDA-Public Use
  Company Number: SP07734

PATIENT
  Age: 56 Year
  Sex: Male
  Weight: 70 kg

DRUGS (7)
  1. XIFAXAN [Suspect]
     Indication: PRODUCT USED FOR UNKNOWN INDICATION
     Dosage: 1100 MG (550 MG, 2 IN 1 D), ORAL
     Route: 048
  2. FOLIC ACID [Concomitant]
  3. LACTULOSE (SYRUP) [Concomitant]
  4. LEVOTHYROXINE [Concomitant]
  5. MULTIVITAMINS [Concomitant]
  6. PANTOPRAZOLE [Concomitant]
  7. VITAMIN D [Concomitant]

REACTIONS (4)
  - Rash generalised [None]
  - Rash pruritic [None]
  - Blister [None]
  - Stomatitis [None]
